FAERS Safety Report 6123982-9 (Version None)
Quarter: 2009Q1

REPORT INFORMATION
  Report Type: 
  Country: None (occurrence: None)
  Receive Date: 20090319
  Receipt Date: 20090311
  Transmission Date: 20090719
  Serious: Yes (Other)
  Sender: FDA-Public Use
  Company Number: US-BAYER-200910887NA

PATIENT
  Age: 30 Year
  Sex: Female
  Weight: 67 kg

DRUGS (1)
  1. MIRENA [Suspect]
     Indication: CONTRACEPTION
     Route: 015
     Dates: start: 20080118, end: 20090201

REACTIONS (5)
  - ALLERGIC SINUSITIS [None]
  - AMENORRHOEA [None]
  - DERMATITIS [None]
  - DYSPNOEA [None]
  - IRRITABLE BOWEL SYNDROME [None]
